FAERS Safety Report 8524576-8 (Version None)
Quarter: 2012Q3

REPORT INFORMATION
  Report Type: 
  Country: None (occurrence: None)
  Receive Date: 20120720
  Receipt Date: 20120711
  Transmission Date: 20120928
  Serious: Yes (Hospitalization, Other)
  Sender: FDA-Public Use
  Company Number: US-ABBOTT-12P-163-0919888-00

PATIENT
  Sex: Female
  Weight: 61.29 kg

DRUGS (12)
  1. FEMRING [Concomitant]
     Indication: HORMONE REPLACEMENT THERAPY
  2. SEROQUEL [Concomitant]
     Indication: INSOMNIA
  3. MELOXICAM [Concomitant]
     Indication: BACK PAIN
  4. UNKNOWN MEDICATION [Concomitant]
     Indication: BLOOD PRESSURE
  5. UNKNOWN MEDICATION [Concomitant]
     Indication: THYROID DISORDER
  6. MULTI-VITAMIN [Concomitant]
     Indication: VITAMIN SUPPLEMENTATION
  7. PLAQUENIL [Concomitant]
     Indication: RHEUMATOID ARTHRITIS
  8. EFFEXOR [Concomitant]
     Indication: DEPRESSION
  9. VYVANSE [Concomitant]
     Indication: ATTENTION DEFICIT/HYPERACTIVITY DISORDER
  10. CALCIUM [Concomitant]
     Indication: MINERAL SUPPLEMENTATION
  11. HUMIRA [Suspect]
     Indication: RHEUMATOID ARTHRITIS
     Dates: start: 20110901, end: 20120101
  12. SOMA [Concomitant]
     Indication: BACK PAIN

REACTIONS (16)
  - INCISION SITE PAIN [None]
  - JAW DISORDER [None]
  - CHOLECYSTITIS [None]
  - GALLBLADDER CHOLESTEROLOSIS [None]
  - BRUXISM [None]
  - TOOTH FRACTURE [None]
  - CHOLECYSTITIS CHRONIC [None]
  - SPINAL CORD COMPRESSION [None]
  - TOOTH DISORDER [None]
  - PAIN [None]
  - PAIN IN JAW [None]
  - SYNOVIAL CYST [None]
  - INCISIONAL DRAINAGE [None]
  - BACK PAIN [None]
  - ANAEMIA [None]
  - ALVEOLAR OSTEITIS [None]
